FAERS Safety Report 16700335 (Version 2)
Quarter: 2019Q3

REPORT INFORMATION
  Report Type: Spontaneous
  Country: US (occurrence: US)
  Receive Date: 20190814
  Receipt Date: 20190820
  Transmission Date: 20191004
  Serious: Yes (Other)
  Sender: FDA-Public Use
  Company Number: US-AMGEN-USASP2019126527

PATIENT
  Age: 61 Year
  Sex: Male
  Weight: 136.96 kg

DRUGS (4)
  1. TRESIBA [Concomitant]
     Active Substance: INSULIN DEGLUDEC
  2. NOVOLOG [Concomitant]
     Active Substance: INSULIN ASPART
  3. REPATHA [Suspect]
     Active Substance: EVOLOCUMAB
     Indication: BLOOD CHOLESTEROL INCREASED
     Dosage: UNK
     Route: 065
     Dates: start: 20190727, end: 20190727
  4. OZEMPIC [Concomitant]
     Active Substance: SEMAGLUTIDE
     Indication: DIABETES MELLITUS
     Dosage: UNK
     Dates: start: 201905

REACTIONS (5)
  - Muscle spasms [Not Recovered/Not Resolved]
  - Eructation [Unknown]
  - Arthralgia [Unknown]
  - Sleep disorder due to a general medical condition [Unknown]
  - Upper respiratory tract infection [Not Recovered/Not Resolved]

NARRATIVE: CASE EVENT DATE: 20190729
